FAERS Safety Report 15986250 (Version 1)
Quarter: 2019Q1

REPORT INFORMATION
  Report Type: Spontaneous
  Country: BR (occurrence: BR)
  Receive Date: 20190220
  Receipt Date: 20190220
  Transmission Date: 20190418
  Serious: Yes (Hospitalization, Other)
  Sender: FDA-Public Use
  Company Number: BR-EMD SERONO-9068803

PATIENT
  Age: 30 Year
  Sex: Female

DRUGS (3)
  1. OVIDREL [Suspect]
     Active Substance: CHORIOGONADOTROPIN ALFA
     Indication: OVULATION INDUCTION
     Dosage: 250 MICROGRAMS/0.5 ML, 1 CLICK PER DAY, ABOUT 25 DOSES PER MONTH
     Route: 058
     Dates: start: 201808
  2. OVIDREL [Suspect]
     Active Substance: CHORIOGONADOTROPIN ALFA
     Indication: WEIGHT DECREASED
     Route: 058
     Dates: start: 20180920
  3. OVIDREL [Suspect]
     Active Substance: CHORIOGONADOTROPIN ALFA
     Dosage: STARTED TAKING THE MEDICATION AGAIN
     Route: 058
     Dates: start: 201902

REACTIONS (6)
  - Device issue [Unknown]
  - Abortion spontaneous [Recovered/Resolved]
  - Progesterone decreased [Unknown]
  - Surgery [Recovered/Resolved]
  - Alopecia [Unknown]
  - Off label use [Unknown]

NARRATIVE: CASE EVENT DATE: 201811
